FAERS Safety Report 19305696 (Version 2)
Quarter: 2021Q3

REPORT INFORMATION
  Report Type: Spontaneous
  Country: GB (occurrence: GB)
  Receive Date: 20210526
  Receipt Date: 20210707
  Transmission Date: 20211014
  Serious: Yes (Other)
  Sender: FDA-Public Use
  Company Number: GB-TEVA-2021-GB-1914156

PATIENT
  Age: 43 Year
  Sex: Male
  Weight: 101 kg

DRUGS (10)
  1. CISPLATIN. [Suspect]
     Active Substance: CISPLATIN
     Indication: OESOPHAGEAL SQUAMOUS CELL CARCINOMA
     Dosage: UNK
     Route: 065
     Dates: start: 201409, end: 201501
  2. OXALIPLATIN. [Suspect]
     Active Substance: OXALIPLATIN
     Indication: OESOPHAGEAL SQUAMOUS CELL CARCINOMA
     Dosage: UNK
     Route: 065
     Dates: start: 202003, end: 202009
  3. PACLITAXEL. [Suspect]
     Active Substance: PACLITAXEL
     Indication: OESOPHAGEAL SQUAMOUS CELL CARCINOMA
     Dosage: UNK
     Route: 065
     Dates: start: 201905, end: 201906
  4. CALCIUM FOLINATE [Suspect]
     Active Substance: LEUCOVORIN CALCIUM
     Indication: OESOPHAGEAL SQUAMOUS CELL CARCINOMA
     Dosage: UNK
     Route: 065
     Dates: start: 202003, end: 202009
  5. CARBOPLATIN. [Suspect]
     Active Substance: CARBOPLATIN
     Indication: OESOPHAGEAL SQUAMOUS CELL CARCINOMA
     Dosage: UNK
     Route: 065
     Dates: start: 201905, end: 201906
  6. DOCETAXEL. [Suspect]
     Active Substance: DOCETAXEL
     Indication: OESOPHAGEAL SQUAMOUS CELL CARCINOMA
     Dosage: UNK
     Route: 065
     Dates: start: 201409, end: 201501
  7. FLUOROURACIL. [Suspect]
     Active Substance: FLUOROURACIL
     Dosage: 800 MILLIGRAM DAILY;
     Route: 065
     Dates: start: 20210217
  8. FLUOROURACIL. [Suspect]
     Active Substance: FLUOROURACIL
     Indication: OESOPHAGEAL SQUAMOUS CELL CARCINOMA
     Dosage: UNK
     Route: 065
     Dates: start: 201409, end: 201501
  9. FLUOROURACIL. [Suspect]
     Active Substance: FLUOROURACIL
     Dosage: UNK
     Route: 065
     Dates: start: 202003, end: 202009
  10. 5 FU [Concomitant]
     Active Substance: FLUOROURACIL
     Indication: CHEMOTHERAPY
     Dosage: 800 MILLIGRAM DAILY; BOLUS PLUS INTRAVENOUS DIP, AS CHEMOTHERAPY
     Route: 041
     Dates: start: 20210217

REACTIONS (4)
  - Product use in unapproved indication [Unknown]
  - Neuropathy peripheral [Not Recovered/Not Resolved]
  - Neoplasm progression [Unknown]
  - Off label use [Unknown]

NARRATIVE: CASE EVENT DATE: 2020
